FAERS Safety Report 8183478-X (Version None)
Quarter: 2012Q1

REPORT INFORMATION
  Report Type: 
  Country: None (occurrence: None)
  Receive Date: 20120201
  Receipt Date: 20111017
  Transmission Date: 20120608
  Serious: Yes (Hospitalization, Other)
  Sender: FDA-Public Use
  Company Number: 305405USA

PATIENT
  Sex: Female

DRUGS (1)
  1. LOSARTAN POTASSIUM AND HYDROCHLOROTHIAZIDE [Suspect]
     Indication: HYPERTENSION
     Dosage: 50/12.5 MG, ORAL
     Route: 048
     Dates: start: 20110201, end: 20110731

REACTIONS (5)
  - SWOLLEN TONGUE [None]
  - DRUG HYPERSENSITIVITY [None]
  - SWELLING [None]
  - PHARYNGEAL OEDEMA [None]
  - SINUS DISORDER [None]
